FAERS Safety Report 7580980-6 (Version None)
Quarter: 2011Q2

REPORT INFORMATION
  Report Type: 
  Country: None (occurrence: None)
  Receive Date: 20110629
  Receipt Date: 20110624
  Transmission Date: 20111010
  Serious: No
  Sender: FDA-Public Use
  Company Number: US-TEVA-288215USA

PATIENT
  Sex: Female

DRUGS (10)
  1. EPINEPHRINE [Concomitant]
  2. NORMENSAL [Concomitant]
  3. GUAIFENESIN [Concomitant]
  4. SERETIDE                           /01420901/ [Concomitant]
  5. NAPROXEN [Concomitant]
  6. ZOLPIDEM TARTRATE [Concomitant]
  7. ALBUTEROL [Concomitant]
  8. PANTOPRAZOLE [Concomitant]
  9. CETIRIZINE HYDROCHLORIDE [Concomitant]
  10. COPAXONE [Suspect]
     Indication: MULTIPLE SCLEROSIS
     Route: 058
     Dates: start: 20110308

REACTIONS (1)
  - AMENORRHOEA [None]
